FAERS Safety Report 25064194 (Version 1)
Quarter: 2025Q1

REPORT INFORMATION
  Report Type: Report from Study
  Country: US (occurrence: US)
  Receive Date: 20250311
  Receipt Date: 20250311
  Transmission Date: 20250408
  Serious: Yes (Hospitalization)
  Sender: ALNYLAM PHARMACEUTICALS
  Company Number: US-ALNYLAM PHARMACEUTICALS, INC.-ALN-2025-000012

PATIENT

DRUGS (1)
  1. AMVUTTRA [Suspect]
     Active Substance: VUTRISIRAN
     Indication: Hereditary neuropathic amyloidosis
     Route: 065
     Dates: start: 20240613, end: 20240613

REACTIONS (5)
  - Pneumonia [Unknown]
  - Decubitus ulcer [Unknown]
  - Skin lesion [Unknown]
  - Intentional dose omission [Unknown]
  - Illness [Unknown]

NARRATIVE: CASE EVENT DATE: 20240101
